FAERS Safety Report 22325703 (Version 1)
Quarter: 2023Q2

REPORT INFORMATION
  Report Type: Spontaneous
  Country: US (occurrence: None)
  Receive Date: 20230515
  Receipt Date: 20230515
  Transmission Date: 20230721
  Serious: No
  Sender: FDA-Public Use
  Company Number: None

PATIENT
  Sex: Female

DRUGS (3)
  1. OPSUMIT [Suspect]
     Active Substance: MACITENTAN
     Indication: Pulmonary arterial hypertension
     Dosage: FREQUENCY : DAILY;?
     Route: 048
     Dates: start: 201611
  2. REMODULIN [Suspect]
     Active Substance: TREPROSTINIL
  3. 2-HYDROXYETHYL METHACRYLATE\DEVICE [Suspect]
     Active Substance: 2-HYDROXYETHYL METHACRYLATE\DEVICE

REACTIONS (6)
  - Infusion site irritation [None]
  - Infusion site pain [None]
  - Infusion site erythema [None]
  - Dermatitis contact [None]
  - Device failure [None]
  - Device infusion issue [None]
